FAERS Safety Report 15036953 (Version 3)
Quarter: 2019Q1

REPORT INFORMATION
  Report Type: Spontaneous
  Country: US (occurrence: US)
  Receive Date: 20180620
  Receipt Date: 20190123
  Transmission Date: 20190417
  Serious: Yes (Life-Threatening, Other)
  Sender: FDA-Public Use
  Company Number: US-009507513-1806USA008387

PATIENT
  Age: 16 Year
  Sex: Female
  Weight: 48 kg

DRUGS (10)
  1. BRIDION [Suspect]
     Active Substance: SUGAMMADEX
     Dosage: 10 MG/KG, ONCE (RESCUE SECOND DOSE:500 MG)
     Route: 042
     Dates: start: 20180505, end: 20180505
  2. CANCIDAS [Suspect]
     Active Substance: CASPOFUNGIN ACETATE
     Indication: PROPHYLAXIS
     Dosage: 70 MG/KG, LOADING DOSE
     Route: 042
     Dates: start: 20180505, end: 20180505
  3. DILAUDID [Concomitant]
     Active Substance: HYDROMORPHONE HYDROCHLORIDE
     Indication: ANAESTHESIA PROCEDURE
     Dosage: UNK
     Route: 042
     Dates: start: 20180505, end: 20180505
  4. INSULIN [Concomitant]
     Active Substance: INSULIN NOS
  5. BRIDION [Suspect]
     Active Substance: SUGAMMADEX
     Indication: NEUROMUSCULAR BLOCKADE REVERSAL
     Dosage: 4 MG/KG, ONCE (FIRST DOSE: 195 MG)
     Route: 042
     Dates: start: 20180505, end: 20180505
  6. ZEMURON [Suspect]
     Active Substance: ROCURONIUM BROMIDE
     Dosage: 50 MG, UNK
     Dates: start: 20180505, end: 20180505
  7. SUXAMETHONIUM CHLORIDE FRESENIUS [Concomitant]
     Active Substance: SUCCINYLCHOLINE
     Indication: ENDOTRACHEAL INTUBATION
     Dosage: UNK
     Route: 055
     Dates: start: 20180505
  8. PROPOFOL. [Concomitant]
     Active Substance: PROPOFOL
     Indication: ANAESTHESIA PROCEDURE
     Dosage: UNK
     Route: 042
     Dates: start: 20180505
  9. ZEMURON [Suspect]
     Active Substance: ROCURONIUM BROMIDE
     Dosage: 25 MG, REPEAT DOSE
     Dates: start: 20180505, end: 20180505
  10. KETAMINE [Concomitant]
     Active Substance: KETAMINE
     Indication: ANAESTHESIA PROCEDURE
     Dosage: UNK
     Route: 042
     Dates: start: 20180505, end: 20180505

REACTIONS (2)
  - Paralysis [Recovered/Resolved]
  - Apnoea [Recovered/Resolved]

NARRATIVE: CASE EVENT DATE: 20180505
